FAERS Safety Report 8772973 (Version 1)
Quarter: 2012Q4

REPORT INFORMATION
  Report Type: 
  Country: IE (occurrence: IE)
  Receive Date: 20120907
  Receipt Date: 20120907
  Transmission Date: 20130627
  Serious: Yes (Death)
  Sender: FDA-Public Use
  Company Number: PHHY2012IE077302

PATIENT

DRUGS (11)
  1. CICLOSPORIN [Suspect]
     Indication: PROPHYLAXIS AGAINST GRAFT VERSUS HOST DISEASE
  2. URSODEOXYCHOLIC ACID [Suspect]
     Indication: VENOOCCLUSIVE DISEASE
  3. METHOTREXATE [Concomitant]
     Indication: PROPHYLAXIS AGAINST GRAFT VERSUS HOST DISEASE
  4. CYCLOPHOSPHAMIDE [Concomitant]
  5. BUSULPHAN [Concomitant]
  6. ALEMTUZUMAB [Concomitant]
  7. CO-TRIMOXAZOLE [Concomitant]
  8. ACICLOVIR [Concomitant]
  9. VORICONAZOLE [Concomitant]
  10. AMPHOTERICIN B LIPID COMPLEX [Concomitant]
  11. ANTIBIOTICS [Concomitant]

REACTIONS (2)
  - Venoocclusive disease [Fatal]
  - Adenovirus infection [Fatal]
